FAERS Safety Report 11220843 (Version 1)
Quarter: 2015Q2

REPORT INFORMATION
  Report Type: Spontaneous
  Country: US (occurrence: None)
  Receive Date: 20150625
  Receipt Date: 20150625
  Transmission Date: 20150821
  Serious: No
  Sender: FDA-Public Use
  Company Number: None

PATIENT
  Age: 73 Year
  Sex: Female

DRUGS (11)
  1. OMEPRAZOLE. [Concomitant]
     Active Substance: OMEPRAZOLE
  2. TACLONEX [Concomitant]
     Active Substance: BETAMETHASONE DIPROPIONATE\CALCIPOTRIENE\CALCIPOTRIENE HYDRATE
  3. FLAX SEED [Concomitant]
     Active Substance: FLAX SEED
  4. LORATADINE. [Concomitant]
     Active Substance: LORATADINE
  5. LOVASTATIN. [Concomitant]
     Active Substance: LOVASTATIN
  6. ENBREL [Suspect]
     Active Substance: ETANERCEPT
     Dosage: 25MG, QW, SC
     Route: 058
     Dates: start: 200801
  7. VERAPAMIL [Concomitant]
     Active Substance: VERAPAMIL HYDROCHLORIDE
  8. RANITIDINE [Concomitant]
     Active Substance: RANITIDINE\RANITIDINE HYDROCHLORIDE
  9. ENBREL [Concomitant]
     Active Substance: ETANERCEPT
  10. PRAVASTATIN [Concomitant]
     Active Substance: PRAVASTATIN\PRAVASTATIN SODIUM
  11. HYDROCHLOROT [Concomitant]
     Active Substance: HYDROCHLOROTHIAZIDE

REACTIONS (1)
  - Condition aggravated [None]
